FAERS Safety Report 15499794 (Version 1)
Quarter: 2018Q4

REPORT INFORMATION
  Report Type: Spontaneous
  Country: MX (occurrence: MX)
  Receive Date: 20181015
  Receipt Date: 20181015
  Transmission Date: 20190205
  Serious: Yes (Hospitalization, Congenital Anomaly, Other)
  Sender: FDA-Public Use
  Company Number: MX-GLAXOSMITHKLINE-MX2018GSK185549

PATIENT
  Sex: Female

DRUGS (1)
  1. RANITIDINE. [Suspect]
     Active Substance: RANITIDINE
     Indication: GASTRITIS
     Route: 064

REACTIONS (11)
  - Moebius II syndrome [Unknown]
  - Cephalhaematoma [Unknown]
  - Respiratory distress [Unknown]
  - Micrognathia [Unknown]
  - Lacrimation increased [Unknown]
  - Cleft palate [Unknown]
  - Feeding disorder [Unknown]
  - Craniofacial deformity [Unknown]
  - Foetal exposure during pregnancy [Unknown]
  - Gastrooesophageal reflux disease [Unknown]
  - Facial paralysis [Unknown]
